FAERS Safety Report 7749590-1 (Version None)
Quarter: 2011Q3

REPORT INFORMATION
  Report Type: 
  Country: None (occurrence: None)
  Receive Date: 20110907
  Receipt Date: 20110822
  Transmission Date: 20111222
  Serious: Yes (Other)
  Sender: FDA-Public Use
  Company Number: 2011SP039792

PATIENT
  Sex: Female

DRUGS (2)
  1. RIBAVIRIN [Suspect]
     Indication: HEPATITIS C
  2. PEG-INTRON [Suspect]
     Indication: HEPATITIS C

REACTIONS (8)
  - OSTEOPOROSIS [None]
  - NAUSEA [None]
  - PAIN [None]
  - RENAL DISORDER [None]
  - MALAISE [None]
  - NO THERAPEUTIC RESPONSE [None]
  - HEPATIC CIRRHOSIS [None]
  - ASTHENIA [None]
